FAERS Safety Report 6359136-0 (Version None)
Quarter: 2009Q3

REPORT INFORMATION
  Report Type: 
  Country: None (occurrence: None)
  Receive Date: 20090917
  Receipt Date: 20070530
  Transmission Date: 20100115
  Serious: Yes (Other)
  Sender: FDA-Public Use
  Company Number: US-ASTRAZENECA-2006UW08214

PATIENT
  Age: 396 Month
  Sex: Female
  Weight: 74.4 kg

DRUGS (25)
  1. SEROQUEL [Suspect]
     Indication: GENERALISED ANXIETY DISORDER
     Dosage: 25 MG DISPENSED
     Route: 048
     Dates: start: 20050321, end: 20050501
  2. SEROQUEL [Suspect]
     Indication: PANIC ATTACK
     Dosage: 25 MG DISPENSED
     Route: 048
     Dates: start: 20050321, end: 20050501
  3. SEROQUEL [Suspect]
     Indication: INSOMNIA
     Dosage: 25 MG DISPENSED
     Route: 048
     Dates: start: 20050321, end: 20050501
  4. LISINOPRIL [Concomitant]
     Indication: HYPERTENSION
     Dates: start: 20020101
  5. LISINOPRIL [Concomitant]
     Dates: start: 20030101
  6. SOMA [Concomitant]
     Dates: start: 20030101
  7. PREVACID [Concomitant]
  8. TRAZODONE [Concomitant]
     Dates: start: 20050101
  9. ZOLOFT [Concomitant]
     Dosage: 50MG-100MG
  10. AMBIEN CR/AMBIEN [Concomitant]
     Indication: RESTLESSNESS
     Dosage: 5-10 MG
     Dates: start: 20030301
  11. VISTARIL [Concomitant]
     Dates: start: 20060703
  12. REMERON [Concomitant]
     Dates: start: 20060703
  13. PAXIL [Concomitant]
     Indication: CRYING
     Dates: start: 20030301
  14. EFFEXOR [Concomitant]
     Dates: start: 20051212
  15. LEXAPRO [Concomitant]
     Indication: DEPRESSION
     Route: 048
     Dates: start: 20031001
  16. LEXAPRO [Concomitant]
     Dates: start: 20060429
  17. HYDROCODONE [Concomitant]
     Dosage: 7.5/750MG
  18. LORTAB [Concomitant]
     Indication: PAIN
     Dosage: 7.5 MG, ONE TO TWO Q 4 TO 6 H PRN
     Route: 048
     Dates: start: 20030326
  19. LORTAB [Concomitant]
     Indication: FIBROMYALGIA
     Dosage: 7.5 MG, ONE TO TWO Q 4 TO 6 H PRN
     Route: 048
     Dates: start: 20030326
  20. NEURONTIN [Concomitant]
     Indication: FIBROMYALGIA
     Dates: start: 20031216
  21. PREDNISONE [Concomitant]
  22. KLONOPIN [Concomitant]
     Dosage: 0.5MG TO 2MG,AT NIGHT
     Dates: start: 20030101
  23. NORTRIPTYLINE HCL [Concomitant]
     Indication: RESTLESSNESS
     Dates: start: 20050504
  24. DARVOCET-N 100 [Concomitant]
     Indication: PAIN
     Dosage: 100/650 DISPENSED
     Dates: start: 20031125
  25. CARISOPRODOL [Concomitant]
     Dosage: 350 MG DISPENSED
     Dates: start: 20041019

REACTIONS (19)
  - ABDOMINAL DISCOMFORT [None]
  - ABDOMINAL PAIN [None]
  - AUTONOMIC NEUROPATHY [None]
  - BACK PAIN [None]
  - CHEST PAIN [None]
  - DIABETIC COMA [None]
  - DIARRHOEA [None]
  - DYSPNOEA EXERTIONAL [None]
  - GASTRITIS [None]
  - HAEMORRHAGIC OVARIAN CYST [None]
  - HEADACHE [None]
  - LIVER DISORDER [None]
  - NECK PAIN [None]
  - NEUROPATHY PERIPHERAL [None]
  - OEDEMA PERIPHERAL [None]
  - PNEUMOBILIA [None]
  - PYELONEPHRITIS [None]
  - TYPE 2 DIABETES MELLITUS [None]
  - WEIGHT INCREASED [None]
